FAERS Safety Report 11355189 (Version 4)
Quarter: 2016Q2

REPORT INFORMATION
  Report Type: Spontaneous
  Country: US (occurrence: US)
  Receive Date: 20150807
  Receipt Date: 20160513
  Transmission Date: 20160815
  Serious: Yes (Other)
  Sender: FDA-Public Use
  Company Number: US-PFIZER INC-2015251534

PATIENT
  Age: 55 Year
  Sex: Female
  Weight: 66 kg

DRUGS (4)
  1. PHENOBARBITAL. [Concomitant]
     Active Substance: PHENOBARBITAL
     Dosage: 210 MG, DAILY (4 IN THE MORNING 3 IN AFTERNOON)
  2. DILANTIN [Suspect]
     Active Substance: PHENYTOIN
     Indication: SEIZURE
     Dosage: 100 MG, UNK
  3. DILANTIN [Suspect]
     Active Substance: PHENYTOIN
     Indication: EPILEPSY
     Dosage: 100 MG, 2X/DAY
     Dates: start: 1960
  4. DILANTIN [Suspect]
     Active Substance: PHENYTOIN
     Dosage: 200 MG, 2X/DAY  (2 CAPSULES IN THE MORNING AND 2 IN THE AFTERNOON)

REACTIONS (10)
  - Condition aggravated [Not Recovered/Not Resolved]
  - Ectopic pregnancy [Unknown]
  - Dysgeusia [Unknown]
  - Expired product administered [Unknown]
  - Arthralgia [Unknown]
  - Headache [Not Recovered/Not Resolved]
  - Malaise [Unknown]
  - Poor quality drug administered [Not Recovered/Not Resolved]
  - Product odour abnormal [Unknown]
  - Seizure [Not Recovered/Not Resolved]
